FAERS Safety Report 4970493-X (Version None)
Quarter: 2006Q1

REPORT INFORMATION
  Report Type: 
  Country: None (occurrence: None)
  Receive Date: 20060127
  Receipt Date: 20051123
  Transmission Date: 20060701
  Serious: No
  Sender: FDA-Public Use
  Company Number: 012049

PATIENT
  Age: 53 Year
  Sex: Male

DRUGS (12)
  1. PRIALT [Suspect]
     Indication: PAIN
     Dosage: SEE IMAGE
     Route: 037
     Dates: start: 20050701, end: 20051122
  2. PRIALT [Suspect]
     Indication: PAIN
     Dosage: SEE IMAGE
     Route: 037
     Dates: start: 20051122
  3. LEVAQUIN [Suspect]
     Dosage: 750 MG, ONCE/DAY
  4. NEURONTIN [Concomitant]
  5. DILAUDID [Concomitant]
  6. CELEBREX [Concomitant]
  7. TRAZODONE HCL [Concomitant]
  8. CELEXA [Concomitant]
  9. ZYRTEC [Concomitant]
  10. AMBIEN [Concomitant]
  11. LORAZEPAM [Concomitant]
  12. CLONIDINE [Concomitant]

REACTIONS (7)
  - ABDOMINAL PAIN UPPER [None]
  - DYSGEUSIA [None]
  - DYSLEXIA [None]
  - MENTAL IMPAIRMENT [None]
  - NOCTURIA [None]
  - RED BLOOD CELL COUNT DECREASED [None]
  - VISION BLURRED [None]
